FAERS Safety Report 9646051 (Version 1)
Quarter: 2013Q4

REPORT INFORMATION
  Report Type: Spontaneous
  Country: US (occurrence: None)
  Receive Date: 20131023
  Receipt Date: 20131023
  Transmission Date: 20140711
  Serious: Yes (Hospitalization, Other)
  Sender: FDA-Public Use
  Company Number: ACO_39059_2013

PATIENT
  Age: 62 Year
  Sex: Female
  Weight: 61.2 kg

DRUGS (3)
  1. AMPYRA [Suspect]
     Indication: GAIT DISTURBANCE
     Dosage: 10 MG, Q 12 HRS, ORAL
     Route: 048
  2. BACLOFEN (BACLOFEN) [Concomitant]
  3. COPAXONE [Concomitant]

REACTIONS (11)
  - Ankle fracture [None]
  - Trigeminal neuralgia [None]
  - Nerve compression [None]
  - Fall [None]
  - Haemorrhage [None]
  - Weight decreased [None]
  - Asthenia [None]
  - Urinary tract infection staphylococcal [None]
  - Delirium [None]
  - Haemoglobin decreased [None]
  - Constipation [None]
